FAERS Safety Report 15424407 (Version 2)
Quarter: 2019Q3

REPORT INFORMATION
  Report Type: Other
  Country: FI (occurrence: FI)
  Receive Date: 20180925
  Receipt Date: 20190828
  Transmission Date: 20191004
  Serious: Yes (Life-Threatening, Other)
  Sender: FDA-Public Use
  Company Number: FI-ASTELLAS-2018US041382

PATIENT
  Age: 51 Year
  Sex: Male

DRUGS (1)
  1. VESICARE [Suspect]
     Active Substance: SOLIFENACIN SUCCINATE
     Indication: PRODUCT USED FOR UNKNOWN INDICATION
     Dosage: 1 DF, ONCE DAILY (MORNING)
     Route: 048
     Dates: start: 2015, end: 20180701

REACTIONS (9)
  - Malaise [Recovered/Resolved]
  - Treatment noncompliance [Unknown]
  - Vision blurred [Recovered/Resolved]
  - Road traffic accident [Recovered/Resolved]
  - Vomiting [Recovered/Resolved]
  - Prescription drug used without a prescription [Unknown]
  - Electrocardiogram QT prolonged [Recovered/Resolved]
  - Arrhythmia [Recovered/Resolved]
  - Loss of consciousness [Recovered/Resolved]

NARRATIVE: CASE EVENT DATE: 20180701
